FAERS Safety Report 7001174-9 (Version None)
Quarter: 2010Q3

REPORT INFORMATION
  Report Type: 
  Country: None (occurrence: None)
  Receive Date: 20100920
  Receipt Date: 20070423
  Transmission Date: 20110219
  Serious: No
  Sender: FDA-Public Use
  Company Number: US-ASTRAZENECA-2006UW25359

PATIENT
  Age: 40 Year
  Sex: Female
  Weight: 113.4 kg

DRUGS (10)
  1. SEROQUEL [Suspect]
     Indication: SCHIZOPHRENIA
     Route: 048
     Dates: start: 19970101, end: 20050101
  2. SEROQUEL [Suspect]
     Dosage: 25 MG TO 400 MG
     Route: 048
     Dates: start: 20010725
  3. ABILIFY [Concomitant]
     Dates: start: 20000101
  4. RISPERDAL [Concomitant]
     Dates: start: 19950101, end: 19970101
  5. LOXAPINE [Concomitant]
     Dosage: 5 MG TO 300 MG
     Route: 048
     Dates: start: 20010521
  6. GLIMEPIRIDE [Concomitant]
     Route: 048
     Dates: start: 20050616
  7. LORAZEPAM [Concomitant]
     Route: 048
     Dates: start: 20050616
  8. ATORVASTATIN [Concomitant]
     Route: 048
     Dates: start: 20050616
  9. PROZAC [Concomitant]
     Indication: DEPRESSION
     Dosage: 20 MG TO 60 MG
     Dates: start: 20010622
  10. KLONOPIN [Concomitant]
     Indication: SLEEP DISORDER
     Dosage: 1 MG TO 3 MG
     Dates: start: 20010611

REACTIONS (5)
  - DIABETES MELLITUS [None]
  - OBESITY [None]
  - OVERWEIGHT [None]
  - TYPE 2 DIABETES MELLITUS [None]
  - WEIGHT INCREASED [None]
